FAERS Safety Report 15819572 (Version 2)
Quarter: 2019Q1

REPORT INFORMATION
  Report Type: Spontaneous
  Country: KR (occurrence: KR)
  Receive Date: 20190114
  Receipt Date: 20190118
  Transmission Date: 20190417
  Serious: Yes (Death, Hospitalization, Other)
  Sender: FDA-Public Use
  Company Number: KR-009507513-1901KOR002115

PATIENT
  Sex: Male

DRUGS (2)
  1. KEYTRUDA [Suspect]
     Active Substance: PEMBROLIZUMAB
     Indication: LUNG ADENOCARCINOMA
     Dosage: QUANTITY2(UNIT NOT REPORTED)
     Dates: start: 20181130
  2. KEYTRUDA [Suspect]
     Active Substance: PEMBROLIZUMAB
     Dosage: QUANTITY2(UNIT NOT REPORTED)
     Dates: start: 20181227

REACTIONS (4)
  - Adverse event [Unknown]
  - Septic shock [Fatal]
  - Pneumonia [Unknown]
  - Adverse event [Unknown]

NARRATIVE: CASE EVENT DATE: 2018
